FAERS Safety Report 10028341 (Version 5)
Quarter: 2015Q2

REPORT INFORMATION
  Report Type: Spontaneous
  Country: US (occurrence: US)
  Receive Date: 20140321
  Receipt Date: 20150605
  Transmission Date: 20150821
  Serious: Yes (Hospitalization, Other)
  Sender: FDA-Public Use
  Company Number: US-SA-2014SA030289

PATIENT
  Age: 67 Year
  Sex: Male

DRUGS (15)
  1. COREG [Concomitant]
     Active Substance: CARVEDILOL
  2. BENADRYL [Concomitant]
     Active Substance: DIPHENHYDRAMINE HYDROCHLORIDE
  3. PERCOCET [Concomitant]
     Active Substance: ACETAMINOPHEN\OXYCODONE HYDROCHLORIDE
  4. CLARITIN [Concomitant]
     Active Substance: LORATADINE
  5. SOMA [Concomitant]
     Active Substance: CARISOPRODOL
  6. ALDACTONE [Concomitant]
     Active Substance: SPIRONOLACTONE
  7. COZAAR [Concomitant]
     Active Substance: LOSARTAN POTASSIUM
  8. ASPIRIN. [Concomitant]
     Active Substance: ASPIRIN
  9. CYMBALTA [Concomitant]
     Active Substance: DULOXETINE HYDROCHLORIDE
  10. PLAVIX [Suspect]
     Active Substance: CLOPIDOGREL BISULFATE
     Indication: CORONARY ARTERY DISEASE
     Route: 048
     Dates: start: 20090819, end: 20091016
  11. LASIX [Concomitant]
     Active Substance: FUROSEMIDE
  12. TEMAZEPAM. [Concomitant]
     Active Substance: TEMAZEPAM
  13. COLACE [Concomitant]
     Active Substance: DOCUSATE SODIUM
  14. MORPHINE SULFATE. [Concomitant]
     Active Substance: MORPHINE SULFATE
  15. METFORMIN [Concomitant]
     Active Substance: METFORMIN HYDROCHLORIDE

REACTIONS (3)
  - Cerebral haemorrhage [Unknown]
  - Multiple injuries [Unknown]
  - Subdural haematoma [Unknown]

NARRATIVE: CASE EVENT DATE: 20091016
